FAERS Safety Report 4452995-8 (Version None)
Quarter: 2004Q3

REPORT INFORMATION
  Report Type: 
  Country: None (occurrence: None)
  Receive Date: 20040916
  Receipt Date: 20040907
  Transmission Date: 20050211
  Serious: No
  Sender: FDA-Public Use
  Company Number: 2004UW13550

PATIENT
  Age: 54 Year
  Sex: Female
  Weight: 61.2356 kg

DRUGS (12)
  1. IRESSA [Suspect]
     Indication: NON-SMALL CELL LUNG CANCER
     Dosage: 250 MG DAILY PO
     Route: 048
     Dates: start: 20040630, end: 20040630
  2. CELEBREX [Concomitant]
  3. MEDROXYPROGESTERONE [Concomitant]
  4. CELLULAR FORTE + IP-6 + INOSITOL [Concomitant]
  5. ASPIRIN [Concomitant]
  6. TRANSFER FACTOR [Concomitant]
  7. SELENIUM TRACE METAL ADDITIVE [Concomitant]
  8. LIQUID CALCIUIM + VITAMIN D [Concomitant]
  9. VITAMIN E [Concomitant]
  10. FLAXSEED OIL [Concomitant]
  11. HORNY GOAT WEED [Concomitant]
  12. ALEVE [Concomitant]

REACTIONS (4)
  - CHEST PAIN [None]
  - COUGH [None]
  - DYSPNOEA [None]
  - FEELING HOT [None]
